FAERS Safety Report 5296894-0 (Version None)
Quarter: 2007Q2

REPORT INFORMATION
  Report Type: 
  Country: None (occurrence: None)
  Receive Date: 20070413
  Receipt Date: 20070405
  Transmission Date: 20071010
  Serious: Yes (Hospitalization)
  Sender: FDA-Public Use
  Company Number: FR-PFIZER INC-2007028329

PATIENT
  Age: 50 Year
  Sex: Male

DRUGS (2)
  1. ALDACTONE [Suspect]
     Route: 048
     Dates: start: 20070211, end: 20070214
  2. LASIX [Suspect]
     Route: 048
     Dates: start: 20070125, end: 20070224

REACTIONS (3)
  - ECCHYMOSIS [None]
  - PURPURA [None]
  - THROMBOCYTOPENIA [None]
